FAERS Safety Report 12773286 (Version 24)
Quarter: 2025Q1

REPORT INFORMATION
  Report Type: Report from Study
  Country: CA (occurrence: CA)
  Receive Date: 20160922
  Receipt Date: 20250107
  Transmission Date: 20250408
  Serious: Yes (Hospitalization, Other)
  Sender: TAKEDA
  Company Number: CA-TAKEDA-2016TUS016639

PATIENT
  Sex: Female

DRUGS (23)
  1. VEDOLIZUMAB [Suspect]
     Active Substance: VEDOLIZUMAB
     Indication: Crohn^s disease
  2. VEDOLIZUMAB [Suspect]
     Active Substance: VEDOLIZUMAB
  3. VEDOLIZUMAB [Suspect]
     Active Substance: VEDOLIZUMAB
  4. VEDOLIZUMAB [Suspect]
     Active Substance: VEDOLIZUMAB
  5. VEDOLIZUMAB [Suspect]
     Active Substance: VEDOLIZUMAB
  6. VEDOLIZUMAB [Suspect]
     Active Substance: VEDOLIZUMAB
  7. VEDOLIZUMAB [Suspect]
     Active Substance: VEDOLIZUMAB
  8. VEDOLIZUMAB [Suspect]
     Active Substance: VEDOLIZUMAB
  9. VEDOLIZUMAB [Suspect]
     Active Substance: VEDOLIZUMAB
  10. VEDOLIZUMAB [Suspect]
     Active Substance: VEDOLIZUMAB
  11. VEDOLIZUMAB [Suspect]
     Active Substance: VEDOLIZUMAB
  12. VEDOLIZUMAB [Suspect]
     Active Substance: VEDOLIZUMAB
  13. VEDOLIZUMAB [Suspect]
     Active Substance: VEDOLIZUMAB
     Dosage: 300 MILLIGRAM, Q4WEEKS
     Dates: start: 20230706
  14. VEDOLIZUMAB [Suspect]
     Active Substance: VEDOLIZUMAB
  15. VEDOLIZUMAB [Suspect]
     Active Substance: VEDOLIZUMAB
  16. PREDNISONE [Suspect]
     Active Substance: PREDNISONE
     Indication: Product used for unknown indication
  17. PREDNISONE [Suspect]
     Active Substance: PREDNISONE
  18. PREDNISONE [Suspect]
     Active Substance: PREDNISONE
  19. GLUCOSAMINE [Concomitant]
     Active Substance: GLUCOSAMINE
  20. B12 [Concomitant]
     Dosage: UNK UNK, MONTHLY
  21. FISH OIL [Concomitant]
     Active Substance: FISH OIL
  22. CURCUMIN [Concomitant]
     Active Substance: CURCUMIN
     Indication: Immune enhancement therapy
  23. ARGININE [Concomitant]
     Active Substance: ARGININE
     Indication: Gastrointestinal pain

REACTIONS (28)
  - Intestinal obstruction [Unknown]
  - Crohn^s disease [Recovering/Resolving]
  - Confusional state [Not Recovered/Not Resolved]
  - Melaena [Unknown]
  - Vision blurred [Unknown]
  - Pneumonia [Unknown]
  - Amnesia [Not Recovered/Not Resolved]
  - Condition aggravated [Unknown]
  - Muscular weakness [Unknown]
  - Diarrhoea [Unknown]
  - Hypoaesthesia [Not Recovered/Not Resolved]
  - Neuralgia [Not Recovered/Not Resolved]
  - Burning sensation [Not Recovered/Not Resolved]
  - Swelling of eyelid [Unknown]
  - Dry eye [Unknown]
  - Generalised oedema [Unknown]
  - Eye swelling [Unknown]
  - Restless legs syndrome [Not Recovered/Not Resolved]
  - Brain fog [Unknown]
  - Sinus disorder [Unknown]
  - Insomnia [Unknown]
  - Influenza like illness [Unknown]
  - Off label use [Unknown]
  - Paraesthesia [Unknown]
  - Arthralgia [Unknown]
  - Headache [Recovered/Resolved]
  - Nasopharyngitis [Unknown]
  - Rash [Unknown]

NARRATIVE: CASE EVENT DATE: 20160101
